FAERS Safety Report 6380746-9 (Version None)
Quarter: 2009Q3

REPORT INFORMATION
  Report Type: 
  Country: None (occurrence: None)
  Receive Date: 20090929
  Receipt Date: 20090925
  Transmission Date: 20100115
  Serious: Yes (Life-Threatening)
  Sender: FDA-Public Use
  Company Number: US-ASTRAZENECA-2009SE15285

PATIENT
  Age: 40 Year
  Sex: Male

DRUGS (4)
  1. PROPOFOL [Suspect]
     Indication: SEDATION
     Dosage: 50-90 UG/KG/MIN
  2. PROPOFOL [Suspect]
     Indication: AGITATION
     Dosage: 50-90 UG/KG/MIN
  3. PROPOFOL [Suspect]
     Dosage: HIGH-DOSE
  4. PROPOFOL [Suspect]
     Dosage: HIGH-DOSE

REACTIONS (1)
  - PROPOFOL INFUSION SYNDROME [None]
